FAERS Safety Report 21363590 (Version 1)
Quarter: 2022Q3

REPORT INFORMATION
  Report Type: Spontaneous
  Country: US (occurrence: US)
  Receive Date: 20220922
  Receipt Date: 20220922
  Transmission Date: 20221026
  Serious: No
  Sender: FDA-Public Use
  Company Number: US-PFIZER INC-202200744200

PATIENT
  Age: 83 Year
  Sex: Female

DRUGS (1)
  1. ESTRING [Suspect]
     Active Substance: ESTRADIOL
     Dosage: 2 MG
     Route: 061

REACTIONS (4)
  - Device issue [Unknown]
  - Device difficult to use [Unknown]
  - Product prescribing issue [Unknown]
  - Product size issue [Unknown]
